FAERS Safety Report 6184041-2 (Version None)
Quarter: 2009Q2

REPORT INFORMATION
  Report Type: 
  Country: None (occurrence: None)
  Receive Date: 20090508
  Receipt Date: 20090423
  Transmission Date: 20091009
  Serious: Yes (Death, Hospitalization)
  Sender: FDA-Public Use
  Company Number: FR-PFIZER INC-2009206156

PATIENT
  Age: 85 Year

DRUGS (10)
  1. ATARAX [Suspect]
     Indication: AGITATION
     Dosage: 100 MG, UNK
     Route: 048
     Dates: end: 20090320
  2. ATARAX [Interacting]
     Dosage: 150 MG, UNK
     Route: 048
     Dates: start: 20090321, end: 20090322
  3. CLOZAPINE [Interacting]
     Indication: HALLUCINATION
     Dosage: 12.5 MG, 1X/DAY
     Route: 048
     Dates: start: 20090319, end: 20090323
  4. RIVOTRIL [Interacting]
     Indication: HALLUCINATION
     Dosage: 20 GTT, UNK
     Route: 048
     Dates: start: 20090301, end: 20090323
  5. RIVOTRIL [Interacting]
     Indication: AGITATION
  6. ARICEPT [Concomitant]
     Indication: DEMENTIA
     Dosage: 5 MG, 1X/DAY
     Route: 048
     Dates: start: 20080801, end: 20090402
  7. PRAXILENE [Concomitant]
     Indication: DEMENTIA
     Dosage: 400 MG, UNK
     Route: 048
     Dates: start: 20080101, end: 20090402
  8. PLAVIX [Concomitant]
     Indication: MYOCARDIAL INFARCTION
     Dosage: 75 MG, UNK
     Route: 048
     Dates: start: 19940101, end: 20090402
  9. PERINDOPRIL ERBUMINE [Concomitant]
     Indication: MYOCARDIAL INFARCTION
     Dosage: 4 MG, UNK
     Route: 048
     Dates: start: 19940101, end: 20090402
  10. ELISOR [Concomitant]
     Indication: MYOCARDIAL INFARCTION
     Dosage: 20 MG, UNK
     Route: 048
     Dates: start: 19940101, end: 20090402

REACTIONS (3)
  - DRUG INTERACTION [None]
  - PNEUMONIA ASPIRATION [None]
  - SOMNOLENCE [None]
